FAERS Safety Report 4285876-3 (Version None)
Quarter: 2004Q1

REPORT INFORMATION
  Report Type: 
  Country: None (occurrence: None)
  Receive Date: 20040203
  Receipt Date: 20040123
  Transmission Date: 20041129
  Serious: Yes (Death, Hospitalization)
  Sender: FDA-Public Use
  Company Number: 2003IM000840

PATIENT
  Age: 52 Year
  Sex: Female
  Weight: 81 kg

DRUGS (13)
  1. INTERFERON GAMMA-1B (INTERFERON GAMMA-1B) [Suspect]
     Indication: INTERSTITIAL LUNG DISEASE
     Dosage: 200 UG;TIW;SUBCUTANEOUS
     Route: 058
     Dates: start: 20021203, end: 20030804
  2. PREDNISONE [Concomitant]
  3. L-THYROXINE [Concomitant]
  4. METFORMIN HCL [Concomitant]
  5. CELEBREX [Concomitant]
  6. LIPITOR [Concomitant]
  7. ASPIRIN [Concomitant]
  8. QUINAPRIL HYDROCHLORIDE [Concomitant]
  9. AMITRIPTYLINE [Concomitant]
  10. KETOCONAZOLE [Concomitant]
  11. BETAMETHASONE [Concomitant]
  12. GLYBURIDE [Concomitant]
  13. SEPTRA DS [Concomitant]

REACTIONS (18)
  - ACUTE RESPIRATORY DISTRESS SYNDROME [None]
  - BOWEL SOUNDS ABNORMAL [None]
  - CHILLS [None]
  - CONDITION AGGRAVATED [None]
  - CORONARY ARTERY DISEASE [None]
  - COUGH [None]
  - DRUG INTERACTION [None]
  - DYSPNOEA [None]
  - HAEMOPTYSIS [None]
  - HEMIPARESIS [None]
  - HYPERSENSITIVITY [None]
  - LOWER RESPIRATORY TRACT INFECTION [None]
  - PANCREATITIS ACUTE [None]
  - PLEURAL DISORDER [None]
  - PNEUMONIA [None]
  - PULMONARY FIBROSIS [None]
  - RESPIRATORY FAILURE [None]
  - TRANSIENT ISCHAEMIC ATTACK [None]
